FAERS Safety Report 17560231 (Version 1)
Quarter: 2020Q1

REPORT INFORMATION
  Report Type: Spontaneous
  Country: US (occurrence: US)
  Receive Date: 20200318
  Receipt Date: 20200318
  Transmission Date: 20200409
  Serious: No
  Sender: FDA-Public Use
  Company Number: None

PATIENT
  Age: 74 Year
  Sex: Female
  Weight: 41.85 kg

DRUGS (11)
  1. SERTRALINE [Concomitant]
     Active Substance: SERTRALINE HYDROCHLORIDE
  2. KYPROLIS [Suspect]
     Active Substance: CARFILZOMIB
     Indication: PLASMA CELL MYELOMA
     Dates: start: 20190618
  3. FAMOTIDINE. [Concomitant]
     Active Substance: FAMOTIDINE
  4. PHENYTOIN. [Concomitant]
     Active Substance: PHENYTOIN
  5. FARYDAK [Suspect]
     Active Substance: PANOBINOSTAT
     Indication: PLASMA CELL MYELOMA
     Route: 048
     Dates: start: 20191204, end: 20200318
  6. ATORVASTATIN [Concomitant]
     Active Substance: ATORVASTATIN
  7. SODIUM BICARB [Concomitant]
     Active Substance: SODIUM BICARBONATE
  8. VALACYCLOVIR [Concomitant]
     Active Substance: VALACYCLOVIR HYDROCHLORIDE
  9. PENTASA [Concomitant]
     Active Substance: MESALAMINE
  10. AMLODIPINE [Concomitant]
     Active Substance: AMLODIPINE BESYLATE
  11. COUMADIN [Concomitant]
     Active Substance: WARFARIN SODIUM

REACTIONS (1)
  - Disease progression [None]

NARRATIVE: CASE EVENT DATE: 20200318
